FAERS Safety Report 4794443-4 (Version None)
Quarter: 2005Q4

REPORT INFORMATION
  Report Type: 
  Country: None (occurrence: None)
  Receive Date: 20051011
  Receipt Date: 20050720
  Transmission Date: 20060501
  Serious: Yes (Hospitalization)
  Sender: FDA-Public Use
  Company Number: SE-AMGEN-UK143494

PATIENT
  Sex: Female

DRUGS (16)
  1. MIMPARA [Suspect]
     Indication: HYPERPARATHYROIDISM SECONDARY
     Route: 048
     Dates: start: 20050401, end: 20050601
  2. PROGRAF [Concomitant]
     Route: 065
  3. CELLCEPT [Concomitant]
     Route: 065
  4. SIMVASTATIN [Concomitant]
     Route: 065
     Dates: end: 20050719
  5. PREDNISOLONE [Concomitant]
     Route: 065
  6. METOPROLOL SUCCINATE [Concomitant]
     Route: 065
  7. FUROSEMIDE [Concomitant]
     Route: 065
  8. SPIRONOLACTONE [Concomitant]
     Route: 065
  9. ASPIRIN [Concomitant]
     Route: 065
  10. KALIUM [Concomitant]
     Route: 065
  11. FOLACIN [Concomitant]
     Route: 065
  12. SELEXID [Concomitant]
     Route: 065
  13. NEORECORMON [Concomitant]
     Route: 065
  14. BENDROFLUMETHIAZIDE [Concomitant]
     Route: 065
  15. TRAMADOL HYDROCHLORIDE [Concomitant]
     Route: 065
  16. EZETIMIBE [Concomitant]
     Route: 065

REACTIONS (5)
  - BLOOD CALCIUM DECREASED [None]
  - BLOOD CREATINE INCREASED [None]
  - BLOOD POTASSIUM DECREASED [None]
  - MUSCULAR WEAKNESS [None]
  - MYOGLOBIN BLOOD INCREASED [None]
